FAERS Safety Report 21031405 (Version 6)
Quarter: 2022Q3

REPORT INFORMATION
  Report Type: Spontaneous
  Country: CA (occurrence: CA)
  Receive Date: 20220701
  Receipt Date: 20220902
  Transmission Date: 20221026
  Serious: Yes (Other)
  Sender: FDA-Public Use
  Company Number: CA-CELLTRION INC.-2022CA004927

PATIENT

DRUGS (8)
  1. INFLECTRA [Suspect]
     Active Substance: INFLIXIMAB-DYYB
     Indication: Ankylosing spondylitis
     Dosage: 5 MG/KG, 0, 2, 6 THEN EVERY 8 WEEKS
     Route: 042
     Dates: start: 20220128, end: 20220506
  2. INFLECTRA [Suspect]
     Active Substance: INFLIXIMAB-DYYB
     Indication: Colitis ulcerative
     Dosage: 5 MG/KG, 0, 2, 6 THEN EVERY 8 WEEKS
     Route: 042
     Dates: start: 20220210
  3. INFLECTRA [Suspect]
     Active Substance: INFLIXIMAB-DYYB
     Dosage: 5 MG/KG, 0, 2, 6 THEN EVERY 8 WEEKS
     Route: 042
     Dates: start: 20220310
  4. INFLECTRA [Suspect]
     Active Substance: INFLIXIMAB-DYYB
     Dosage: 300 MG (SUPPOSED TO RECEIVE 5 MG/KG), 0, 2, 6 THEN EVERY 8 WEEKS
     Route: 042
     Dates: start: 20220506
  5. INFLECTRA [Suspect]
     Active Substance: INFLIXIMAB-DYYB
     Dosage: 5 MG/KG, EVERY 7 WEEKS (SCHEDULED 28JUN2022)
     Route: 042
     Dates: start: 20220628
  6. INFLECTRA [Suspect]
     Active Substance: INFLIXIMAB-DYYB
     Dosage: 300 MG (SUPPOSED TO RECEIVE 5 MG/KG) EVERY 7 WEEKS
     Route: 042
     Dates: start: 20220818
  7. CORTISONE [Concomitant]
     Active Substance: CORTISONE
     Dosage: 1 DF, DOSAGE NOT AVAILABE
     Route: 065
  8. METHOTREXATE [Concomitant]
     Active Substance: METHOTREXATE
     Dosage: 1 DF, DOSAGE NOT AVAILABLE
     Route: 065

REACTIONS (22)
  - Colitis ulcerative [Not Recovered/Not Resolved]
  - Therapeutic product effect incomplete [Unknown]
  - Therapeutic product effect incomplete [Unknown]
  - Therapeutic response shortened [Unknown]
  - Therapeutic response unexpected [Unknown]
  - Off label use [Unknown]
  - Off label use [Unknown]
  - Intentional product use issue [Unknown]
  - Incorrect dosage administered [Unknown]
  - Fatigue [Not Recovered/Not Resolved]
  - Paraesthesia [Unknown]
  - Heart rate increased [Unknown]
  - Thyroid disorder [Unknown]
  - Ecchymosis [Not Recovered/Not Resolved]
  - Pre-existing condition improved [Unknown]
  - Contusion [Unknown]
  - Peripheral swelling [Unknown]
  - Pain in extremity [Unknown]
  - Pain [Not Recovered/Not Resolved]
  - Diarrhoea [Not Recovered/Not Resolved]
  - Condition aggravated [Not Recovered/Not Resolved]
  - Respiratory tract infection [Not Recovered/Not Resolved]

NARRATIVE: CASE EVENT DATE: 20220101
